FAERS Safety Report 15789547 (Version 2)
Quarter: 2020Q2

REPORT INFORMATION
  Report Type: Report from Study
  Country: GT (occurrence: GT)
  Receive Date: 20190104
  Receipt Date: 20200421
  Transmission Date: 20200713
  Serious: Yes (Hospitalization, Other)
  Sender: FDA-Public Use
  Company Number: GT-SA-2019SA000096

PATIENT
  Age: 60 Year
  Sex: Female
  Weight: 54.4 kg

DRUGS (2)
  1. IRBESARTAN. [Suspect]
     Active Substance: IRBESARTAN
     Indication: BLOOD PRESSURE ABNORMAL
     Dosage: 1 DF (1 ORAL TABLET OF 300 MG), QD
     Route: 048
     Dates: start: 2017
  2. IRBESARTAN. [Suspect]
     Active Substance: IRBESARTAN
     Indication: HYPERTENSION
     Dosage: 1 DF (1 ORAL TABLET OF 300 MG), QD
     Route: 048
     Dates: start: 201612

REACTIONS (4)
  - Renal failure [Not Recovered/Not Resolved]
  - Swelling [Recovered/Resolved]
  - Cardiac failure [Recovered/Resolved with Sequelae]
  - Depression [Recovered/Resolved with Sequelae]

NARRATIVE: CASE EVENT DATE: 201701
